APPROVED DRUG PRODUCT: PANTOPAQUE
Active Ingredient: IOPHENDYLATE
Strength: 100%
Dosage Form/Route: INJECTABLE;INJECTION
Application: N005319 | Product #001
Applicant: ALCON LABORATORIES INC
Approved: Approved Prior to Jan 1, 1982 | RLD: No | RS: No | Type: DISCN